FAERS Safety Report 4562631-8 (Version None)
Quarter: 2005Q1

REPORT INFORMATION
  Report Type: 
  Country: None (occurrence: None)
  Receive Date: 20050124
  Receipt Date: 20050127
  Transmission Date: 20050727
  Serious: Yes (Life-Threatening)
  Sender: FDA-Public Use
  Company Number: 2004089488

PATIENT
  Age: 32 Year
  Sex: Male

DRUGS (1)
  1. FLUCONAZOLE [Suspect]
     Indication: ORAL CANDIDIASIS
     Dosage: ORAL
     Route: 048
     Dates: start: 20040815, end: 20040815

REACTIONS (7)
  - ANGIONEUROTIC OEDEMA [None]
  - CONDITION AGGRAVATED [None]
  - HYPERSENSITIVITY [None]
  - LARYNGEAL DYSPNOEA [None]
  - LARYNGEAL OEDEMA [None]
  - RESPIRATORY DISORDER [None]
  - URTICARIA [None]
